FAERS Safety Report 18103406 (Version 4)
Quarter: 2021Q2

REPORT INFORMATION
  Report Type: Spontaneous
  Country: US (occurrence: US)
  Receive Date: 20200803
  Receipt Date: 20210629
  Transmission Date: 20210717
  Serious: Yes (Other)
  Sender: FDA-Public Use
  Company Number: US-PFIZER INC-2019131678

PATIENT
  Age: 69 Year
  Sex: Female

DRUGS (2)
  1. LYRICA [Suspect]
     Active Substance: PREGABALIN
     Dosage: 100 MG, AS NEEDED (1 CAPSULE EVERY 6 HOURS (AS NEEDED))
  2. LYRICA [Suspect]
     Active Substance: PREGABALIN
     Dosage: 100 MG, 4X/DAY (1 CAPSULE QID (FOUR TIMES A DAY))

REACTIONS (4)
  - Insomnia [Unknown]
  - Neuropathy peripheral [Unknown]
  - Discomfort [Unknown]
  - Frustration tolerance decreased [Unknown]
